FAERS Safety Report 9618359 (Version 2)
Quarter: 2013Q4

REPORT INFORMATION
  Report Type: Spontaneous
  Country: CN (occurrence: CN)
  Receive Date: 20131014
  Receipt Date: 20131021
  Transmission Date: 20140711
  Serious: Yes (Death)
  Sender: FDA-Public Use
  Company Number: CN-ROCHE-1288506

PATIENT
  Age: 36 Year
  Sex: Female

DRUGS (2)
  1. ROCEPHIN [Suspect]
     Indication: INFECTION
     Route: 041
     Dates: start: 20131010
  2. PIPERACILLIN/TAZOBACTAM [Concomitant]
     Indication: BRONCHIECTASIS

REACTIONS (1)
  - Anaphylactic shock [Fatal]
